FAERS Safety Report 8343854-9 (Version None)
Quarter: 2012Q2

REPORT INFORMATION
  Report Type: 
  Country: None (occurrence: None)
  Receive Date: 20120508
  Receipt Date: 20120427
  Transmission Date: 20120825
  Serious: Yes (Other)
  Sender: FDA-Public Use
  Company Number: GR-JNJFOC-20120500782

PATIENT
  Age: 62 Year
  Sex: Male

DRUGS (2)
  1. REMICADE [Suspect]
     Indication: COLITIS ULCERATIVE
     Dosage: 3RD INFUSION
     Route: 042
     Dates: start: 20120427, end: 20120427
  2. REMICADE [Suspect]
     Route: 042

REACTIONS (5)
  - OEDEMA PERIPHERAL [None]
  - OEDEMA [None]
  - HYPERSENSITIVITY [None]
  - HYPOAESTHESIA EYE [None]
  - INFUSION RELATED REACTION [None]
